FAERS Safety Report 19705620 (Version 1)
Quarter: 2021Q3

REPORT INFORMATION
  Report Type: Spontaneous
  Country: US (occurrence: US)
  Receive Date: 20210817
  Receipt Date: 20210817
  Transmission Date: 20211014
  Serious: Yes (Other)
  Sender: FDA-Public Use
  Company Number: US-JNJFOC-20210817462

PATIENT
  Sex: Female

DRUGS (1)
  1. INVOKAMET XR [Suspect]
     Active Substance: CANAGLIFLOZIN\METFORMIN HYDROCHLORIDE
     Indication: PRODUCT USED FOR UNKNOWN INDICATION
     Dosage: 150?1000 MG
     Route: 048

REACTIONS (2)
  - Rib fracture [Unknown]
  - Road traffic accident [Unknown]
